FAERS Safety Report 23923761 (Version 1)
Quarter: 2024Q2

REPORT INFORMATION
  Report Type: Spontaneous
  Country: GU (occurrence: GU)
  Receive Date: 20240531
  Receipt Date: 20240531
  Transmission Date: 20240715
  Serious: Yes (Other)
  Sender: FDA-Public Use
  Company Number: GU-SUN PHARMACEUTICAL INDUSTRIES LTD-2024R1-448704

PATIENT
  Age: 62 Year
  Sex: Male

DRUGS (2)
  1. GEMCITABINE [Suspect]
     Active Substance: GEMCITABINE
     Indication: Intracranial haemangioma
     Dosage: UNK
     Route: 065
  2. VINORELBINE [Suspect]
     Active Substance: VINORELBINE TARTRATE
     Indication: Intracranial haemangioma
     Dosage: UNK
     Route: 065

REACTIONS (3)
  - Metastatic neoplasm [Unknown]
  - Dizziness [Unknown]
  - Muscular weakness [Unknown]
